FAERS Safety Report 24236637 (Version 1)
Quarter: 2024Q3

REPORT INFORMATION
  Report Type: Report from Study
  Country: US (occurrence: None)
  Receive Date: 20240822
  Receipt Date: 20240822
  Transmission Date: 20241016
  Serious: Yes (Other)
  Sender: ASTRAZENECA
  Company Number: 2023A129069

PATIENT
  Sex: Male

DRUGS (1)
  1. FARXIGA [Suspect]
     Active Substance: DAPAGLIFLOZIN PROPANEDIOL
     Route: 048

REACTIONS (11)
  - Myocardial infarction [Unknown]
  - Hypoacusis [Unknown]
  - Illness [Unknown]
  - Ejection fraction decreased [Unknown]
  - Meniscus injury [Unknown]
  - Dyspnoea exertional [Unknown]
  - Dyspnoea [Unknown]
  - Confusional state [Unknown]
  - Cardiac rehabilitation therapy [Unknown]
  - Positron emission tomogram [Unknown]
  - Computerised tomogram [Unknown]
